FAERS Safety Report 21337358 (Version 1)
Quarter: 2022Q3

REPORT INFORMATION
  Report Type: Report from Study
  Country: US (occurrence: US)
  Receive Date: 20220915
  Receipt Date: 20220915
  Transmission Date: 20221027
  Serious: Yes (Hospitalization, Other)
  Sender: FDA-Public Use
  Company Number: US-BRISTOL-MYERS SQUIBB COMPANY-2022-104170

PATIENT
  Age: 63 Year
  Sex: Male
  Weight: 79.83 kg

DRUGS (2)
  1. REVLIMID [Suspect]
     Active Substance: LENALIDOMIDE
     Indication: Plasma cell myeloma
     Dosage: TAKE 1 CAPSULE DAILY ON DAYS 1 THROUGH 14 OF EACH 21 DAY CYCLE TAKE WHOLE WITH WATER AT THE SAME TIM
     Route: 048
     Dates: start: 202112
  2. VELCADE [Suspect]
     Active Substance: BORTEZOMIB
     Indication: Product used for unknown indication
     Route: 065

REACTIONS (4)
  - Corneal disorder [Recovering/Resolving]
  - Neuropathy peripheral [Unknown]
  - Off label use [Unknown]
  - Peripheral swelling [Unknown]
